FAERS Safety Report 7086716-X (Version None)
Quarter: 2010Q4

REPORT INFORMATION
  Report Type: 
  Country: None (occurrence: None)
  Receive Date: 20101105
  Receipt Date: 20101020
  Transmission Date: 20110411
  Serious: Yes (Death)
  Sender: FDA-Public Use
  Company Number: GB-ROCHE-738802

PATIENT

DRUGS (2)
  1. BEVACIZUMAB [Suspect]
     Route: 031
  2. RANIBIZUMAB [Suspect]
     Route: 031

REACTIONS (1)
  - DEATH [None]
